FAERS Safety Report 4439324-0 (Version None)
Quarter: 2004Q3

REPORT INFORMATION
  Report Type: 
  Country: None (occurrence: None)
  Receive Date: 20040831
  Receipt Date: 20040819
  Transmission Date: 20050211
  Serious: Yes (Life-Threatening, Hospitalization)
  Sender: FDA-Public Use
  Company Number: MC200400202

PATIENT
  Age: 68 Year
  Sex: Female
  Weight: 71.7 kg

DRUGS (6)
  1. ANGIOMAX [Suspect]
     Dosage: 7.5 ML/BOLUS, IV BOLUS
     Route: 040
     Dates: start: 20040809, end: 20040809
  2. PROTONIX ^PHARMACIA^ (PANTOPRAZOLE) [Concomitant]
  3. EFFEXOR [Concomitant]
  4. LISINOPRIL W/HYDROCHLOROTHIAZIDE (LISINOPRIL, HYDROCHLOROTHIAZIDE) [Concomitant]
  5. ISOSORBIDE (ISOSORBIDE) [Concomitant]
  6. ACETYLSALICYLIC ACID SRT [Concomitant]

REACTIONS (3)
  - CARDIO-RESPIRATORY ARREST [None]
  - THROMBOSIS [None]
  - VASCULAR OCCLUSION [None]
